FAERS Safety Report 6297265-0 (Version None)
Quarter: 2009Q3

REPORT INFORMATION
  Report Type: 
  Country: None (occurrence: None)
  Receive Date: 20090805
  Receipt Date: 20090721
  Transmission Date: 20100115
  Serious: Yes (Other)
  Sender: FDA-Public Use
  Company Number: US-PFIZER INC-2008098979

PATIENT
  Sex: Female

DRUGS (14)
  1. CHANTIX [Suspect]
     Indication: SMOKING CESSATION THERAPY
     Dosage: UNK
     Route: 048
     Dates: start: 20081003, end: 20090201
  2. ELAVIL [Concomitant]
     Indication: DEPRESSION
  3. LARIAM [Concomitant]
  4. RESTORIL [Concomitant]
     Indication: ANXIETY
  5. TYLENOL (CAPLET) [Concomitant]
  6. ACETYLSALICYLIC ACID [Concomitant]
  7. ALEVE [Concomitant]
  8. LIBRIUM [Concomitant]
     Indication: ANXIETY
  9. LEXAPRO [Concomitant]
     Dosage: UNK
  10. ANXIOLYTICS [Concomitant]
     Dosage: UNK
  11. TYLENOL W/ CODEINE NO. 4 [Concomitant]
     Indication: BACK PAIN
  12. ADVAIR HFA [Concomitant]
  13. ALL OTHER THERAPEUTIC PRODUCTS [Concomitant]
  14. COFFEE [Concomitant]

REACTIONS (6)
  - ABNORMAL BEHAVIOUR [None]
  - ANXIETY [None]
  - DEPRESSION [None]
  - HOMICIDAL IDEATION [None]
  - MENTAL IMPAIRMENT [None]
  - SELF-INJURIOUS IDEATION [None]
